FAERS Safety Report 25761043 (Version 1)
Quarter: 2025Q3

REPORT INFORMATION
  Report Type: Spontaneous
  Country: US (occurrence: US)
  Receive Date: 20250904
  Receipt Date: 20250904
  Transmission Date: 20251021
  Serious: No
  Sender: VERTEX
  Company Number: US-VERTEX PHARMACEUTICALS-2025-014088

PATIENT

DRUGS (5)
  1. JOURNAVX [Suspect]
     Active Substance: SUZETRIGINE
     Indication: Back pain
     Route: 048
     Dates: start: 20250822, end: 20250823
  2. JOURNAVX [Suspect]
     Active Substance: SUZETRIGINE
     Indication: Sciatica
  3. JOURNAVX [Suspect]
     Active Substance: SUZETRIGINE
     Indication: Pain
  4. MOUNJARO [Concomitant]
     Active Substance: TIRZEPATIDE
  5. HYDROCODONE [Concomitant]
     Active Substance: HYDROCODONE

REACTIONS (4)
  - Nausea [Not Recovered/Not Resolved]
  - Hypophagia [Unknown]
  - Skin burning sensation [Unknown]
  - Off label use [Unknown]

NARRATIVE: CASE EVENT DATE: 20250801
